FAERS Safety Report 9700905 (Version 1)
Quarter: 2013Q4

REPORT INFORMATION
  Report Type: Spontaneous
  Country: US (occurrence: US)
  Receive Date: 20131121
  Receipt Date: 20131121
  Transmission Date: 20140711
  Serious: No
  Sender: FDA-Public Use
  Company Number: US-B.I. PHARMACEUTICALS,INC./RIDGEFIELD-2013-BI-36930BP

PATIENT
  Sex: Female

DRUGS (14)
  1. MOBIC [Suspect]
  2. TYLENOL [Concomitant]
     Indication: ARTHRITIS
     Dosage: 500 MG
     Route: 048
  3. PENNSAID [Concomitant]
     Dosage: 10% SOLUTION
     Route: 061
  4. SIMVASTATIN [Concomitant]
     Indication: BLOOD CHOLESTEROL
     Route: 048
  5. AZULFIDINE [Concomitant]
     Dosage: 1000 MG
     Route: 048
  6. VERAPAMIL [Concomitant]
     Indication: BLOOD PRESSURE
     Dosage: 120 MG
     Route: 048
  7. LISINOPRIL [Concomitant]
     Indication: BLOOD PRESSURE
     Dosage: 20 MG
     Route: 048
  8. GEMFIBROZIL [Concomitant]
     Indication: BLOOD TRIGLYCERIDES
     Dosage: 1200 MG
     Route: 048
  9. BUTRANS [Concomitant]
     Dosage: 1.4286 MCG
     Route: 062
  10. MALATONIN [Concomitant]
     Dosage: 5 MG
     Route: 048
  11. ZANTAC [Concomitant]
     Dosage: 300 MG
     Route: 048
  12. GABAPENTIN [Concomitant]
     Route: 048
  13. PERCOCAT [Concomitant]
     Dosage: 7.5/325 MG
     Route: 048
  14. SAVELLA [Concomitant]
     Dosage: 200 MG
     Route: 048

REACTIONS (1)
  - Drug ineffective [Unknown]
